FAERS Safety Report 18032522 (Version 2)
Quarter: 2021Q2

REPORT INFORMATION
  Report Type: Spontaneous
  Country: US (occurrence: US)
  Receive Date: 20200716
  Receipt Date: 20210526
  Transmission Date: 20210717
  Serious: Yes (Hospitalization)
  Sender: FDA-Public Use
  Company Number: US-VERTEX PHARMACEUTICALS-2020-014503

PATIENT
  Age: 23 Year
  Sex: Female

DRUGS (2)
  1. TRIKAFTA [Suspect]
     Active Substance: ELEXACAFTOR\IVACAFTOR\TEZACAFTOR
     Indication: CYSTIC FIBROSIS
     Dosage: 2 TABS EVERY MORNING, BID
     Route: 048
     Dates: start: 20200106
  2. LORATADINE. [Concomitant]
     Active Substance: LORATADINE

REACTIONS (6)
  - Abdominal distension [Unknown]
  - Blood magnesium decreased [Unknown]
  - Metabolic acidosis [Unknown]
  - Blood glucose abnormal [Recovered/Resolved]
  - Blood potassium decreased [Unknown]
  - Hyperglycaemia [Unknown]

NARRATIVE: CASE EVENT DATE: 20200320
